FAERS Safety Report 6624645-3 (Version None)
Quarter: 2010Q1

REPORT INFORMATION
  Report Type: 
  Country: None (occurrence: None)
  Receive Date: 20100310
  Receipt Date: 20091006
  Transmission Date: 20100710
  Serious: No
  Sender: FDA-Public Use
  Company Number: US-BIOGENIDEC-2009BI032074

PATIENT
  Age: 63 Year
  Sex: Female

DRUGS (2)
  1. AVONEX [Suspect]
     Indication: MULTIPLE SCLEROSIS
     Route: 030
     Dates: start: 20090101
  2. AMITRIPTYLINE HCL [Concomitant]
     Indication: INSOMNIA
     Route: 048

REACTIONS (8)
  - ALCOHOL INTOLERANCE [None]
  - DRUG DOSE OMISSION [None]
  - FALL [None]
  - FATIGUE [None]
  - INFECTION [None]
  - INFLUENZA LIKE ILLNESS [None]
  - INSOMNIA [None]
  - VISION BLURRED [None]
